FAERS Safety Report 12368088 (Version 1)
Quarter: 2016Q2

REPORT INFORMATION
  Report Type: Report from Study
  Country: US (occurrence: US)
  Receive Date: 20160513
  Receipt Date: 20160513
  Transmission Date: 20160815
  Serious: No
  Sender: FDA-Public Use
  Company Number: ADR-2015-01455

PATIENT
  Age: 36 Year
  Sex: Male

DRUGS (6)
  1. FISH OIL [Suspect]
     Active Substance: FISH OIL
     Route: 065
  2. GABAPENTIN. [Suspect]
     Active Substance: GABAPENTIN
     Route: 065
  3. COMPOUNDED BACLOFEN [Suspect]
     Active Substance: BACLOFEN
     Dosage: 399.8 MCG/DAY
     Route: 037
  4. COMPOUNDED BACLOFEN [Suspect]
     Active Substance: BACLOFEN
     Dosage: 300.5 MCG/DAY
     Route: 037
  5. COMPOUNDED BACLOFEN [Suspect]
     Active Substance: BACLOFEN
     Dosage: 249.8 MCG/DAY
     Route: 037
  6. BENADRYL [Suspect]
     Active Substance: DIPHENHYDRAMINE HYDROCHLORIDE
     Route: 065

REACTIONS (5)
  - Implant site extravasation [Unknown]
  - Grip strength decreased [Unknown]
  - Somnolence [Unknown]
  - Adverse drug reaction [Unknown]
  - Dysarthria [Unknown]

NARRATIVE: CASE EVENT DATE: 20150625
